FAERS Safety Report 14093889 (Version 1)
Quarter: 2017Q4

REPORT INFORMATION
  Report Type: Spontaneous
  Country: CN (occurrence: CN)
  Receive Date: 20171016
  Receipt Date: 20171016
  Transmission Date: 20180321
  Serious: Yes (Hospitalization)
  Sender: FDA-Public Use
  Company Number: CN-PFIZER INC-2017439597

PATIENT
  Age: 36 Year
  Sex: Male
  Weight: 55 kg

DRUGS (1)
  1. LINEZOLID. [Suspect]
     Active Substance: LINEZOLID
     Indication: SEPSIS
     Dosage: 0.6 G, 2X/DAY
     Route: 041
     Dates: start: 20170630, end: 20170703

REACTIONS (3)
  - Temperature intolerance [Recovering/Resolving]
  - Pyrexia [Recovering/Resolving]
  - Musculoskeletal pain [Recovering/Resolving]

NARRATIVE: CASE EVENT DATE: 20170702
